FAERS Safety Report 8376466-1 (Version None)
Quarter: 2012Q1

REPORT INFORMATION
  Report Type: 
  Country: None (occurrence: None)
  Receive Date: 20120323
  Receipt Date: 20110808
  Transmission Date: 20120608
  Serious: Yes (Other)
  Sender: FDA-Public Use
  Company Number: 163-21880-11081195

PATIENT
  Age: 51 Year
  Sex: Male

DRUGS (2)
  1. REVLIMID [Suspect]
     Indication: MULTIPLE MYELOMA
     Dosage: 25;10 MG, 1 IN 1 D, PO
     Route: 048
     Dates: start: 20081101
  2. REVLIMID [Suspect]
     Indication: MULTIPLE MYELOMA
     Dosage: 25;10 MG, 1 IN 1 D, PO
     Route: 048
     Dates: start: 20100801

REACTIONS (4)
  - SWELLING FACE [None]
  - VOMITING [None]
  - VIRAL INFECTION [None]
  - OEDEMA PERIPHERAL [None]
